FAERS Safety Report 8075576-6 (Version None)
Quarter: 2012Q1

REPORT INFORMATION
  Report Type: 
  Country: None (occurrence: None)
  Receive Date: 20120127
  Receipt Date: 20120117
  Transmission Date: 20120608
  Serious: Yes (Hospitalization)
  Sender: FDA-Public Use
  Company Number: CN-BRISTOL-MYERS SQUIBB COMPANY-16365041

PATIENT
  Age: 4 Decade
  Sex: Male

DRUGS (1)
  1. ERBITUX [Suspect]
     Indication: LUNG ADENOCARCINOMA
     Route: 042
     Dates: start: 20110101

REACTIONS (2)
  - RASH [None]
  - PULMONARY FIBROSIS [None]
